FAERS Safety Report 6388923-8 (Version None)
Quarter: 2009Q4

REPORT INFORMATION
  Report Type: 
  Country: None (occurrence: None)
  Receive Date: 20091001
  Receipt Date: 20090922
  Transmission Date: 20100525
  Serious: Yes (Hospitalization)
  Sender: FDA-Public Use
  Company Number: GXKR2009FR10530

PATIENT
  Age: 54 Year
  Sex: Female

DRUGS (7)
  1. CITALOPRAM HYDROBROMIDE [Suspect]
     Indication: MAJOR DEPRESSION
     Dosage: 20 MG/DAY, UNKNOWN
  2. CLORAZEPATE (NGX) (CLORAZEPATE) UNKNOWN [Suspect]
     Indication: ALCOHOL DETOXIFICATION
     Dosage: 100 MG/DAY, UNKNOWN
  3. CYAMEMAZINE (CYAMEMAZINE) [Suspect]
     Indication: MAJOR DEPRESSION
     Dosage: 25 MG/DAY, UNKNOWN
  4. ACAMPROSATE (ACAMPROSATE) [Suspect]
     Dosage: 1332 MG/DAY, UNKNOWN
  5. THIAMINE (THIAMINE) [Concomitant]
  6. PYRIDOXINE (PYRIDOXINE) [Concomitant]
  7. NICARPINE (NICARDIPINE HYDROCHLORIDE) [Concomitant]

REACTIONS (13)
  - AGITATION [None]
  - AKINESIA [None]
  - CATATONIA [None]
  - DISORIENTATION [None]
  - FLIGHT OF IDEAS [None]
  - GAZE PALSY [None]
  - MUSCLE RIGIDITY [None]
  - MUTISM [None]
  - NEGATIVISM [None]
  - POVERTY OF SPEECH [None]
  - RESTLESSNESS [None]
  - SPEECH DISORDER [None]
  - WITHDRAWAL SYNDROME [None]
